FAERS Safety Report 4302488-3 (Version None)
Quarter: 2004Q1

REPORT INFORMATION
  Report Type: 
  Country: None (occurrence: None)
  Receive Date: 20040218
  Receipt Date: 20030807
  Transmission Date: 20041129
  Serious: Yes (Other)
  Sender: FDA-Public Use
  Company Number: PHEH2003US06517

PATIENT
  Age: 76 Year
  Sex: Female

DRUGS (5)
  1. DIOVAN [Suspect]
     Dosage: SEE IMAGE
     Route: 048
     Dates: start: 20020701
  2. ACTOS                                           /USA/   (PIOGLITAZONE [Concomitant]
  3. ZOCOR [Concomitant]
  4. TIAZAC [Concomitant]
  5. TOPROL-XL [Concomitant]

REACTIONS (1)
  - BLOOD POTASSIUM INCREASED [None]
